FAERS Safety Report 19089507 (Version 1)
Quarter: 2021Q2

REPORT INFORMATION
  Report Type: Spontaneous
  Country: US (occurrence: US)
  Receive Date: 20210403
  Receipt Date: 20210403
  Transmission Date: 20210717
  Serious: Yes (Hospitalization, Other)
  Sender: FDA-Public Use
  Company Number: US-CIPLA LTD.-2021US02553

PATIENT

DRUGS (13)
  1. ETOPOSIDE. [Suspect]
     Active Substance: ETOPOSIDE
     Dosage: 115.2 MG, ON DAY ?1 AND DAY?2 OF CYCLE?3
     Route: 042
  2. CARBOPLATIN. [Suspect]
     Active Substance: CARBOPLATIN
     Dosage: 272.3 MG, ON DAY?1 AND DAY?2 OF CYCLE?4
     Route: 042
  3. CARBOPLATIN. [Suspect]
     Active Substance: CARBOPLATIN
     Dosage: 274.2 MG, ON DAY?1 AND DAY?2 OF CYCLE?5
     Route: 042
  4. CARBOPLATIN. [Suspect]
     Active Substance: CARBOPLATIN
     Dosage: 268.6 MG, ON DAY?1 AND DAY?2 OF CYCLE?2
     Route: 042
  5. CARBOPLATIN. [Suspect]
     Active Substance: CARBOPLATIN
     Dosage: 265 MG, ON DAY?1 AND DAY?2 OF CYCLE?3
     Route: 042
  6. CARBOPLATIN. [Suspect]
     Active Substance: CARBOPLATIN
     Dosage: 255.8 MG, ON DAY?1 AND DAY?2 OF CYCLE?6
     Route: 042
  7. ETOPOSIDE. [Suspect]
     Active Substance: ETOPOSIDE
     Dosage: 119.2 MG, ON DAY?1 AND DAY?2 OF CYCLE 5
     Route: 042
  8. CARBOPLATIN. [Suspect]
     Active Substance: CARBOPLATIN
     Indication: CONGENITAL RETINOBLASTOMA
     Dosage: 261.3 MG, ON DAY?1 AND DAY?2 OF CYCLE?1
     Route: 042
  9. ETOPOSIDE. [Suspect]
     Active Substance: ETOPOSIDE
     Indication: CONGENITAL RETINOBLASTOMA
     Dosage: 114 MG, ON DAY?1 AND DAY?2 OF CYCLE 1
     Route: 042
  10. VINCRISTINE [Suspect]
     Active Substance: VINCRISTINE
     Indication: CONGENITAL RETINOBLASTOMA
     Dosage: 1 MG, ON DAY 1 OF CYCLE?1 TO 6
     Route: 042
  11. ETOPOSIDE. [Suspect]
     Active Substance: ETOPOSIDE
     Dosage: 118.4 MG, ON DAY?1 AND DAY?2 OF CYCLE?4
     Route: 042
  12. ETOPOSIDE. [Suspect]
     Active Substance: ETOPOSIDE
     Dosage: 111.2 MG, ON DAY?1 AND DAY?2 OF CYCLE?6
     Route: 042
  13. ETOPOSIDE. [Suspect]
     Active Substance: ETOPOSIDE
     Dosage: 116.8 MG, ON DAY?1 AND DAY?2 OF CYCLE 2
     Route: 042

REACTIONS (7)
  - Thrombocytopenia [Unknown]
  - Neutropenia [Unknown]
  - Eye swelling [Unknown]
  - Anaemia [Unknown]
  - Toxicity to various agents [Unknown]
  - Cytopenia [Unknown]
  - Febrile neutropenia [Unknown]
